FAERS Safety Report 6663482-0 (Version None)
Quarter: 2010Q2

REPORT INFORMATION
  Report Type: 
  Country: None (occurrence: None)
  Receive Date: 20100401
  Receipt Date: 20100323
  Transmission Date: 20101027
  Serious: Yes (Other)
  Sender: FDA-Public Use
  Company Number: ES-ABBOTT-10P-144-0627117-00

PATIENT
  Age: 60 Year
  Sex: Female

DRUGS (4)
  1. HUMIRA [Suspect]
     Indication: RHEUMATOID ARTHRITIS
     Route: 058
     Dates: start: 20090601, end: 20100316
  2. DRUGS FOR THYROID PATHOLOGY (NOT SPECIFIED) [Concomitant]
     Indication: THYROID DISORDER
  3. NAPROSYN [Concomitant]
     Indication: RHEUMATOID ARTHRITIS
  4. DACORTIN [Concomitant]
     Indication: RHEUMATOID ARTHRITIS

REACTIONS (1)
  - PANNICULITIS [None]
